FAERS Safety Report 19087427 (Version 1)
Quarter: 2021Q2

REPORT INFORMATION
  Report Type: Spontaneous
  Country: US (occurrence: US)
  Receive Date: 20210402
  Receipt Date: 20210402
  Transmission Date: 20210717
  Serious: Yes (Life-Threatening, Hospitalization, Other)
  Sender: FDA-Public Use
  Company Number: US-KYOWAKIRIN-2021BKK005096

PATIENT

DRUGS (85)
  1. POLICOSANOL [Suspect]
     Active Substance: DIETARY SUPPLEMENT
     Indication: SUPPLEMENTATION THERAPY
     Dosage: UNK
     Route: 065
  2. ZINC MONOMETHIONINE [Suspect]
     Active Substance: ZINC METHIONINE SULFATE
     Indication: SUPPLEMENTATION THERAPY
     Dosage: UNK
     Route: 065
  3. PHOSPHOLIPIDS [Suspect]
     Active Substance: OMEGA-3 FATTY ACIDS
     Indication: SUPPLEMENTATION THERAPY
     Dosage: UNK
     Route: 065
  4. THEOBROMINE [Suspect]
     Active Substance: THEOBROMINE
     Indication: SUPPLEMENTATION THERAPY
     Dosage: UNK
     Route: 065
  5. GREEN TEA [CAMELLIA SINENSIS] [Suspect]
     Active Substance: DIETARY SUPPLEMENT
     Indication: WEIGHT DECREASED
     Dosage: UNK
     Route: 065
  6. YOHIMBE (DIETARY SUPPLEMENT\HERBALS) [Suspect]
     Active Substance: DIETARY SUPPLEMENT\HERBALS
     Indication: SUPPLEMENTATION THERAPY
     Dosage: UNK
     Route: 065
  7. CLENBUTEROL [Suspect]
     Active Substance: CLENBUTEROL
     Indication: SUPPLEMENTATION THERAPY
     Dosage: UNK
     Route: 065
  8. ALLI [Suspect]
     Active Substance: ORLISTAT
     Indication: WEIGHT DECREASED
     Dosage: UNK
     Route: 065
  9. ARACHIDONIC ACID [Suspect]
     Active Substance: ARACHIDONIC ACID
     Indication: SUPPLEMENTATION THERAPY
     Dosage: UNK
     Route: 065
  10. ASHWAGANDHA [WITHANIA SOMNIFERA] [Suspect]
     Active Substance: HERBALS
     Indication: SEDATION
     Dosage: UNK
     Route: 065
  11. VITAMIN D3 [Suspect]
     Active Substance: CHOLECALCIFEROL
     Indication: SUPPLEMENTATION THERAPY
     Dosage: UNK
     Route: 065
  12. MAGNESIUM [Suspect]
     Active Substance: MAGNESIUM
     Indication: SUPPLEMENTATION THERAPY
     Dosage: UNK
     Route: 065
  13. ALPHA LIPOIC ACID [Suspect]
     Active Substance: .ALPHA.-LIPOIC ACID
     Indication: WEIGHT DECREASED
     Dosage: UNK
     Route: 065
  14. FUCOXANTHIN [Suspect]
     Active Substance: FUCOXANTHIN
     Indication: WEIGHT DECREASED
     Dosage: UNK
     Route: 065
  15. EPHEDRA [Suspect]
     Active Substance: EPHEDRA
     Indication: SUPPLEMENTATION THERAPY
     Dosage: UNK
     Route: 065
  16. CITRUS AURANTIUM [Suspect]
     Active Substance: HERBALS
     Indication: SUPPLEMENTATION THERAPY
     Dosage: UNK
     Route: 065
  17. GRAPE SEED [VITIS VINIFERA] [Suspect]
     Active Substance: HERBALS\VITIS VINIFERA SEED
     Indication: SUPPLEMENTATION THERAPY
     Dosage: UNK
     Route: 065
  18. PYRIDOXINE [Suspect]
     Active Substance: PYRIDOXINE
     Indication: SUPPLEMENTATION THERAPY
     Dosage: UNK
     Route: 065
  19. RHODIOLA ROSEA [Suspect]
     Active Substance: HERBALS
     Indication: SEDATION
     Dosage: UNK
     Route: 065
  20. ASTAXANTHIN [Suspect]
     Active Substance: ASTAXANTHIN
     Indication: SUPPLEMENTATION THERAPY
     Dosage: UNK
     Route: 065
  21. TRIBULUS TERRESTRIS [Suspect]
     Active Substance: HERBALS\TRIBULUS TERRESTRIS
     Indication: SUPPLEMENTATION THERAPY
     Dosage: UNK
     Route: 065
  22. HEART HEALTH [Suspect]
     Active Substance: DIETARY SUPPLEMENT
     Indication: SUPPLEMENTATION THERAPY
     Dosage: UNK
     Route: 065
  23. OMEGA?3 FATTY ACIDS [Suspect]
     Active Substance: OMEGA-3 FATTY ACIDS
     Indication: SUPPLEMENTATION THERAPY
     Dosage: UNK
     Route: 065
  24. NIACIN. [Suspect]
     Active Substance: NIACIN
     Indication: SUPPLEMENTATION THERAPY
     Dosage: UNK
     Route: 065
  25. OIL OF PEPPERMINT [Suspect]
     Active Substance: PEPPERMINT OIL
     Indication: SUPPLEMENTATION THERAPY
     Dosage: UNK
     Route: 065
  26. ENOBOSARM [Suspect]
     Active Substance: ENOBOSARM
     Indication: SUPPLEMENTATION THERAPY
     Dosage: UNK
     Route: 065
  27. SAW PALMETTO [SERENOA REPENS] [Suspect]
     Active Substance: HERBALS\SAW PALMETTO
     Indication: SUPPLEMENTATION THERAPY
     Dosage: UNK
     Route: 065
  28. VITAMIN B12 [Suspect]
     Active Substance: CYANOCOBALAMIN
     Indication: SUPPLEMENTATION THERAPY
     Dosage: UNK
     Route: 065
  29. SELENOMETHIONINE. [Suspect]
     Active Substance: SELENOMETHIONINE
     Indication: SUPPLEMENTATION THERAPY
     Dosage: UNK
     Route: 065
  30. CREATINE [Suspect]
     Active Substance: CREATINE
     Indication: SUPPLEMENTATION THERAPY
     Dosage: UNK
     Route: 065
  31. BOSWELLIA SERRATA (GLUCOSATRIN) [Suspect]
     Active Substance: DIETARY SUPPLEMENT
     Indication: SUPPLEMENTATION THERAPY
     Dosage: UNK
     Route: 065
  32. CALCIUM [Suspect]
     Active Substance: CALCIUM
     Indication: SEDATION
     Dosage: UNK
     Route: 065
  33. BACOPA MONNIERA (BLISS ANTISTESS FORMULA) [Suspect]
     Active Substance: DIETARY SUPPLEMENT
     Indication: SEDATION
     Dosage: UNK
     Route: 065
  34. CHROMIUM PICOLINATE [Suspect]
     Active Substance: CHROMIUM PICOLINATE
     Indication: WEIGHT DECREASED
     Dosage: UNK
     Route: 065
  35. L?PHENYLALANINE [Suspect]
     Active Substance: PHENYLALANINE
     Indication: SUPPLEMENTATION THERAPY
     Dosage: UNK
     Route: 065
  36. WHITE WILLOW BARK (DIABLOS ECA FIRE CAPS) [Suspect]
     Active Substance: DIETARY SUPPLEMENT
     Indication: SUPPLEMENTATION THERAPY
     Dosage: UNK
     Route: 065
  37. TOREMIFENE [Suspect]
     Active Substance: TOREMIFENE
     Indication: SUPPLEMENTATION THERAPY
     Dosage: UNK
     Route: 065
  38. MILK THISTLE [SILYBUM MARIANUM] [Suspect]
     Active Substance: DIETARY SUPPLEMENT\HERBALS\MILK THISTLE
     Indication: SUPPLEMENTATION THERAPY
     Dosage: UNK
     Route: 065
  39. VITAMIN K2 [MENAQUINONE] [Suspect]
     Active Substance: MENAQUINONE 6
     Indication: SUPPLEMENTATION THERAPY
     Dosage: UNK
     Route: 065
  40. CORDYCEPS SINENSIS (ADRENAL ESSENCE) [Suspect]
     Active Substance: DIETARY SUPPLEMENT
     Indication: SUPPLEMENTATION THERAPY
     Dosage: UNK
     Route: 065
  41. PANAX GINSENG [Suspect]
     Active Substance: ASIAN GINSENG
     Indication: SUPPLEMENTATION THERAPY
     Dosage: UNK
     Route: 065
  42. ASCORBIC ACID. [Suspect]
     Active Substance: ASCORBIC ACID
     Indication: SUPPLEMENTATION THERAPY
     Dosage: UNK
     Route: 065
  43. MAGNESIUM STEARATE [Suspect]
     Active Substance: MAGNESIUM STEARATE
     Indication: SUPPLEMENTATION THERAPY
     Dosage: UNK
     Route: 065
  44. HUMULUS LUPULUS [Suspect]
     Active Substance: HOPS
     Indication: SUPPLEMENTATION THERAPY
     Dosage: UNK
     Route: 065
  45. OLIVE LEAF [OLEA EUROPAEA LEAF] [Suspect]
     Active Substance: OLEA EUROPAEA LEAF
     Indication: SUPPLEMENTATION THERAPY
     Dosage: UNK
     Route: 065
  46. KRILL OIL [Suspect]
     Active Substance: DIETARY SUPPLEMENT\KRILL OIL
     Indication: SUPPLEMENTATION THERAPY
     Dosage: UNK
     Route: 065
  47. POTASSIUM 99 [Suspect]
     Active Substance: POTASSIUM
     Indication: SUPPLEMENTATION THERAPY
     Dosage: UNK
     Route: 065
  48. FENUGREEK [TRIGONELLA FOENUM?GRAECUM] [Suspect]
     Active Substance: FENUGREEK LEAF\HERBALS
     Indication: WEIGHT DECREASED
     Dosage: UNK
     Route: 065
  49. LACTOFERRIN [Suspect]
     Active Substance: LACTOFERRIN
     Indication: BLOOD GROWTH HORMONE
     Dosage: UNK
     Route: 065
  50. CAFFEINE. [Suspect]
     Active Substance: CAFFEINE
     Indication: SUPPLEMENTATION THERAPY
     Dosage: UNK
     Route: 065
  51. PIPERINE. [Suspect]
     Active Substance: PIPERINE
     Indication: SUPPLEMENTATION THERAPY
     Dosage: UNK
     Route: 065
  52. INSULIN [Suspect]
     Active Substance: INSULIN NOS
     Indication: BLOOD GROWTH HORMONE
     Dosage: UNK
     Route: 065
  53. MILK THISTLE [SILYBUM MARIANUM] [Suspect]
     Active Substance: DIETARY SUPPLEMENT\HERBALS\MILK THISTLE
     Indication: WEIGHT DECREASED
     Dosage: UNK
     Route: 065
  54. PANTOTHENIC ACID [Suspect]
     Active Substance: PANTOTHENIC ACID
     Indication: SUPPLEMENTATION THERAPY
     Dosage: UNK
     Route: 065
  55. RHODIOLA ROSEA [Suspect]
     Active Substance: HERBALS
     Indication: SUPPLEMENTATION THERAPY
     Dosage: UNK
     Route: 065
  56. ASTAXANTHIN [Suspect]
     Active Substance: ASTAXANTHIN
     Indication: PRODUCT USED FOR UNKNOWN INDICATION
     Dosage: UNK
     Route: 065
  57. CALCIUM PHOSPHATE [Suspect]
     Active Substance: CALCIUM PHOSPHATE
     Indication: SUPPLEMENTATION THERAPY
     Dosage: UNK
     Route: 065
  58. ZINC SULFATE. [Suspect]
     Active Substance: ZINC SULFATE
     Indication: SUPPLEMENTATION THERAPY
     Dosage: UNK
     Route: 065
  59. GLUCOSAMINE [Suspect]
     Active Substance: GLUCOSAMINE
     Indication: SUPPLEMENTATION THERAPY
     Dosage: UNK
     Route: 065
  60. OLEA EUROPAEA (GLUCOSATRIN) [Suspect]
     Active Substance: DIETARY SUPPLEMENT
     Indication: SUPPLEMENTATION THERAPY
     Dosage: UNK
     Route: 065
  61. L?THEANINE [Suspect]
     Active Substance: DIETARY SUPPLEMENT
     Indication: SEDATION
     Dosage: UNK
     Route: 065
  62. INSULIN LIKE GROWTH FACTOR I (HUMAN) [Suspect]
     Active Substance: MECASERMIN
     Indication: BLOOD GROWTH HORMONE
     Dosage: UNK
     Route: 065
  63. CAFFEINE. [Suspect]
     Active Substance: CAFFEINE
     Dosage: UNK
     Route: 065
  64. AMINOPHYLLINE. [Suspect]
     Active Substance: AMINOPHYLLINE
     Indication: SUPPLEMENTATION THERAPY
     Dosage: UNK
     Route: 065
  65. T3 [Suspect]
     Active Substance: LIOTHYRONINE SODIUM
     Indication: SUPPLEMENTATION THERAPY
     Dosage: UNK
     Route: 065
  66. PARA?AMINOBENZOIC ACID [Suspect]
     Active Substance: AMINOBENZOIC ACID
     Indication: SUPPLEMENTATION THERAPY
     Dosage: UNK
     Route: 065
  67. STINGING NETTLE ROOT (BLUE OX TEST BOOSTER) [Suspect]
     Active Substance: DIETARY SUPPLEMENT
     Indication: SUPPLEMENTATION THERAPY
     Dosage: UNK
     Route: 065
  68. ASPARTATE [DIETARY SUPPLEMENT] [Suspect]
     Active Substance: DIETARY SUPPLEMENT
     Indication: SUPPLEMENTATION THERAPY
     Dosage: UNK
     Route: 065
  69. COPPER GLUCONATE [Suspect]
     Active Substance: COPPER GLUCONATE
     Indication: SUPPLEMENTATION THERAPY
     Dosage: UNK
     Route: 065
  70. UBIQUINOL QH ABSORB [Suspect]
     Active Substance: UBIQUINOL
     Indication: SUPPLEMENTATION THERAPY
     Dosage: UNK
     Route: 065
  71. PHOSPHORUS [Suspect]
     Active Substance: PHOSPHORUS
     Indication: SEDATION
     Dosage: UNK
     Route: 065
  72. YOHIMBE BARK (DIABLOS ECA RED FIRE CAPS) [Suspect]
     Active Substance: DIETARY SUPPLEMENT
     Indication: SUPPLEMENTATION THERAPY
     Dosage: UNK
     Route: 065
  73. L?CARNITINE [LEVOCARNITINE] [Suspect]
     Active Substance: LEVOCARNITINE
     Indication: SUPPLEMENTATION THERAPY
     Dosage: UNK
     Route: 065
  74. ASHWAGANDHA [WITHANIA SOMNIFERA] [Suspect]
     Active Substance: HERBALS
     Indication: SUPPLEMENTATION THERAPY
     Dosage: UNK
     Route: 065
  75. EURYCOMA LONGIFOLIA (BLUE OX TEST BOOSTER) [Suspect]
     Active Substance: DIETARY SUPPLEMENT
     Indication: SUPPLEMENTATION THERAPY
     Dosage: UNK
     Route: 065
  76. MAGNESIUM ASPARTATE [Suspect]
     Active Substance: MAGNESIUM ASPARTATE
     Indication: SUPPLEMENTATION THERAPY
     Dosage: UNK
     Route: 065
  77. CURCUMIN [CURCUMA LONGA] [Suspect]
     Active Substance: HERBALS\TURMERIC
     Indication: SUPPLEMENTATION THERAPY
     Dosage: UNK
     Route: 065
  78. CHOLECALCIFEROL [Suspect]
     Active Substance: CHOLECALCIFEROL
     Indication: SUPPLEMENTATION THERAPY
     Dosage: UNK
     Route: 065
  79. MANGANESE SULFATE. [Suspect]
     Active Substance: MANGANESE SULFATE
     Indication: SUPPLEMENTATION THERAPY
     Dosage: UNK
     Route: 065
  80. SCUTELLARIA BAICALENSIS (GLUCOSATRIN) [Suspect]
     Active Substance: DIETARY SUPPLEMENT
     Indication: SUPPLEMENTATION THERAPY
     Dosage: UNK
     Route: 065
  81. PROBIOTICS NOS [Suspect]
     Active Substance: PROBIOTICS NOS
     Indication: SUPPLEMENTATION THERAPY
     Dosage: UNK
     Route: 065
  82. BERBERINE [Suspect]
     Active Substance: BERBERINE
     Indication: WEIGHT DECREASED
     Dosage: UNK
     Route: 065
  83. IRVINGIA GABONENSIS [Suspect]
     Active Substance: HERBALS
     Indication: WEIGHT DECREASED
     Dosage: UNK
     Route: 065
  84. HOODIA GORDONII [Suspect]
     Active Substance: DIETARY SUPPLEMENT
     Indication: SUPPLEMENTATION THERAPY
     Dosage: UNK
     Route: 065
  85. CISSUS QUADRANGULARIS (DIABLOS ECA RED FIRE CAPS) [Suspect]
     Active Substance: DIETARY SUPPLEMENT
     Indication: SUPPLEMENTATION THERAPY
     Dosage: UNK
     Route: 065

REACTIONS (7)
  - Encephalopathy [Recovered/Resolved]
  - Acute hepatic failure [Recovered/Resolved]
  - Rhabdomyolysis [Recovered/Resolved]
  - Metal poisoning [Recovered/Resolved]
  - Cephalhaematoma [Recovered/Resolved]
  - Product use in unapproved indication [Unknown]
  - Drug abuse [Unknown]
